FAERS Safety Report 5857922-4 (Version None)
Quarter: 2008Q3

REPORT INFORMATION
  Report Type: 
  Country: None (occurrence: None)
  Receive Date: 20080826
  Receipt Date: 20080818
  Transmission Date: 20090109
  Serious: Yes (Other)
  Sender: FDA-Public Use
  Company Number: US-ASTRAZENECA-2008UW16788

PATIENT
  Age: 61 Year
  Sex: Female

DRUGS (2)
  1. ARIMIDEX [Suspect]
     Indication: BREAST CANCER FEMALE
     Route: 048
     Dates: start: 20050101
  2. ZOCOR [Concomitant]

REACTIONS (3)
  - CARPAL TUNNEL SYNDROME [None]
  - TENDONITIS [None]
  - TRIGGER FINGER [None]
